FAERS Safety Report 21487899 (Version 2)
Quarter: 2023Q1

REPORT INFORMATION
  Report Type: Report from Study
  Country: JP (occurrence: JP)
  Receive Date: 20221020
  Receipt Date: 20230323
  Transmission Date: 20230417
  Serious: Yes (Other)
  Sender: FDA-Public Use
  Company Number: JP-GILEAD-2022-0599375

PATIENT
  Age: 71 Year
  Sex: Male

DRUGS (4)
  1. ADEFOVIR DIPIVOXIL [Suspect]
     Active Substance: ADEFOVIR DIPIVOXIL
     Indication: Chronic hepatitis B
     Dosage: 10 MG
     Route: 065
  2. ADEFOVIR DIPIVOXIL [Suspect]
     Active Substance: ADEFOVIR DIPIVOXIL
     Indication: Hepatitis B DNA increased
  3. LAMIVUDINE [Concomitant]
     Active Substance: LAMIVUDINE
  4. ENTECAVIR [Concomitant]
     Active Substance: ENTECAVIR

REACTIONS (3)
  - Multiple fractures [Unknown]
  - Osteomalacia [Unknown]
  - Fanconi syndrome acquired [Unknown]
